FAERS Safety Report 9094585 (Version 10)
Quarter: 2013Q4

REPORT INFORMATION
  Report Type: Spontaneous
  Country: US (occurrence: US)
  Receive Date: 20130220
  Receipt Date: 20131017
  Transmission Date: 20140711
  Serious: No
  Sender: FDA-Public Use
  Company Number: US-009507513-1301USA011168

PATIENT
  Sex: Male

DRUGS (5)
  1. VICTRELIS [Suspect]
     Indication: CHRONIC HEPATITIS C
     Dosage: STARTED 5TH WEEK OF TREATMENT
     Route: 048
     Dates: start: 20121102
  2. REBETOL [Suspect]
     Indication: CHRONIC HEPATITIS C
     Dosage: 1000 MG DAILY, DIVIDED DOSES: 400/600
     Route: 048
     Dates: start: 20121102
  3. REBETOL [Suspect]
     Dosage: 600 MG, QD
     Route: 048
     Dates: start: 20130130
  4. REBETOL [Suspect]
     Dosage: 400 MG, QD
     Route: 048
  5. PEGASYS [Suspect]
     Indication: CHRONIC HEPATITIS C
     Dosage: 180 MICROGRAM, QW
     Route: 058
     Dates: start: 20121102, end: 20130927

REACTIONS (3)
  - Fatigue [Recovering/Resolving]
  - Anaemia [Recovering/Resolving]
  - Injection site reaction [Unknown]
